FAERS Safety Report 6722683-3 (Version None)
Quarter: 2010Q2

REPORT INFORMATION
  Report Type: 
  Country: None (occurrence: None)
  Receive Date: 20100512
  Receipt Date: 20100428
  Transmission Date: 20101027
  Serious: Yes (Other)
  Sender: FDA-Public Use
  Company Number: US-ELI_LILLY_AND_COMPANY-US201004008211

PATIENT
  Sex: Female

DRUGS (2)
  1. FORTEO [Suspect]
     Dosage: 20 UG, DAILY (1/D)
     Dates: start: 20091101
  2. CALCIUM [Concomitant]

REACTIONS (4)
  - BLOOD CALCIUM INCREASED [None]
  - CATARACT [None]
  - PRECANCEROUS CELLS PRESENT [None]
  - VISUAL IMPAIRMENT [None]
